FAERS Safety Report 8171492-X (Version None)
Quarter: 2012Q1

REPORT INFORMATION
  Report Type: 
  Country: None (occurrence: None)
  Receive Date: 20120104
  Receipt Date: 20111130
  Transmission Date: 20120608
  Serious: No
  Sender: FDA-Public Use
  Company Number: 2011HGS-002880

PATIENT
  Age: 38 Year
  Sex: Female
  Weight: 98.4306 kg

DRUGS (19)
  1. ALLEGRA (FEXOFENADINE HYDROCHLORIDE)(FEXOFENADINE HYDROCHLORIDE) [Concomitant]
  2. RELAFEN (NABUMETONE)(NABUMETONE) [Concomitant]
  3. LAMICTAL [Concomitant]
  4. TRAZODONE (TRAZODONE) (TRAZODONE) [Concomitant]
  5. PLAQUENIL (HYDROXYCHLOROQUINE SULFATE)(HYDROXYCHLOROQUINE SULFATE) [Concomitant]
  6. VITAMIN E(TOCOPHEROL)(TOCOPHEROL) [Concomitant]
  7. CALCIUM(CALCIUM)(CALCIUM) [Concomitant]
  8. BENLYSTA [Suspect]
     Indication: SYSTEMIC LUPUS ERYTHEMATOSUS
     Dosage: 1040 MG, 1 IN 28 D, INTRAVENOUS DRIP
     Route: 041
     Dates: start: 20110831
  9. NEXIUM [Concomitant]
  10. LIPITOR [Concomitant]
  11. PROCARDIA XL (NIFEDIPINE)(NIFEDIPINE) [Concomitant]
  12. ZONEGRAN (ZONISAMIDE)(ZONISAMIDE) [Concomitant]
  13. METHADONE (METHADONE)(METHADONE) [Concomitant]
  14. BYSTOLIC [Concomitant]
  15. VITAMIN D(ERGOCALCIFEROL)(ERGOCALCIFEROL) [Concomitant]
  16. ASPIRIN [Concomitant]
  17. SINGULAIR (MONTELUKAST SODIUM)(MONTELUKAST SODIUM) [Concomitant]
  18. CYMBALTA(ALL OTHER THERAPEUTIC PRODUCTS)(DULOXETINE) [Concomitant]
  19. MULTIVITAMIN(MULTIVITAMINS, PLAIN)(NULL) [Concomitant]

REACTIONS (1)
  - INSOMNIA [None]
